FAERS Safety Report 8322713-1 (Version None)
Quarter: 2012Q2

REPORT INFORMATION
  Report Type: 
  Country: None (occurrence: None)
  Receive Date: 20120426
  Receipt Date: 20120411
  Transmission Date: 20120825
  Serious: Yes (Other)
  Sender: FDA-Public Use
  Company Number: JPI-P-020890

PATIENT
  Age: 42 Year
  Sex: Female
  Weight: 55.3388 kg

DRUGS (5)
  1. CARISOPRODOL [Concomitant]
  2. TIZANIDINE HCL [Concomitant]
  3. PREGABALIN [Concomitant]
  4. AAMPHETAMNIE DEXTROAMPHETAMINE [Concomitant]
  5. XYREM [Suspect]
     Indication: CATAPLEXY
     Dosage: ORAL ; 9 GM (4.5 GM,2 IN 1 D),ORAL
     Route: 048
     Dates: start: 20110727

REACTIONS (6)
  - CONVULSION [None]
  - CONTUSION [None]
  - THYROID NEOPLASM [None]
  - FALL [None]
  - LACERATION [None]
  - PAIN [None]
